FAERS Safety Report 6228127-2 (Version None)
Quarter: 2009Q2

REPORT INFORMATION
  Report Type: 
  Country: None (occurrence: None)
  Receive Date: 20090612
  Receipt Date: 20090608
  Transmission Date: 20091009
  Serious: No
  Sender: FDA-Public Use
  Company Number: US-B.I. PHARMACEUTICALS,INC./RIDGEFIELD-2007-BP-02090BP

PATIENT
  Sex: Female

DRUGS (3)
  1. SPIRIVA [Suspect]
     Indication: CHRONIC OBSTRUCTIVE PULMONARY DISEASE
     Dosage: 18MCG
     Route: 055
     Dates: start: 20050901
  2. ALBUTEROL [Concomitant]
  3. NEXIUM [Concomitant]
     Indication: DYSPEPSIA
     Dosage: 40MG
     Route: 048
     Dates: start: 20040101

REACTIONS (4)
  - AGEUSIA [None]
  - DYSGEUSIA [None]
  - GLOSSODYNIA [None]
  - NAUSEA [None]
